FAERS Safety Report 11523459 (Version 1)
Quarter: 2015Q3

REPORT INFORMATION
  Report Type: Spontaneous
  Country: US (occurrence: US)
  Receive Date: 20150918
  Receipt Date: 20150918
  Transmission Date: 20151125
  Serious: No
  Sender: FDA-Public Use
  Company Number: US-BAYER-2015-413755

PATIENT
  Sex: Female

DRUGS (2)
  1. DOXYCYCLINE. [Suspect]
     Active Substance: DOXYCYCLINE
     Indication: ACNE PUSTULAR
  2. FINACEA [Suspect]
     Active Substance: AZELAIC ACID
     Indication: ACNE PUSTULAR
     Dosage: UNK

REACTIONS (3)
  - Skin discolouration [Recovered/Resolved]
  - Swelling face [Recovered/Resolved]
  - Drug hypersensitivity [None]
